FAERS Safety Report 8712124 (Version 2)
Quarter: 2012Q4

REPORT INFORMATION
  Report Type: 
  Country: US (occurrence: US)
  Receive Date: 20120807
  Receipt Date: 20121010
  Transmission Date: 20130627
  Serious: Yes (Death)
  Sender: FDA-Public Use
  Company Number: US-ROCHE-1097554

PATIENT
  Sex: Male

DRUGS (2)
  1. ACTIVASE [Suspect]
     Indication: PULMONARY EMBOLISM
  2. ACTIVASE [Suspect]
     Indication: PULMONARY INFARCTION

REACTIONS (1)
  - Death [Fatal]
